FAERS Safety Report 17875094 (Version 5)
Quarter: 2021Q4

REPORT INFORMATION
  Report Type: Report from Study
  Country: US (occurrence: US)
  Receive Date: 20200609
  Receipt Date: 20211015
  Transmission Date: 20220303
  Serious: No
  Sender: FDA-Public Use
  Company Number: NVSC2020US159066

PATIENT
  Sex: Female

DRUGS (3)
  1. ILARIS [Suspect]
     Active Substance: CANAKINUMAB
     Indication: Rheumatoid arthritis
     Dosage: 150 MG, QMO
     Route: 058
     Dates: start: 20180808
  2. ILARIS [Suspect]
     Active Substance: CANAKINUMAB
     Dosage: 150 MG, QMO
     Route: 058
     Dates: start: 20200604
  3. ILARIS [Suspect]
     Active Substance: CANAKINUMAB
     Route: 058

REACTIONS (4)
  - Feeling abnormal [Unknown]
  - Anosmia [Unknown]
  - Ageusia [Unknown]
  - Product use in unapproved indication [Unknown]
